FAERS Safety Report 6734018-0 (Version None)
Quarter: 2010Q2

REPORT INFORMATION
  Report Type: 
  Country: None (occurrence: None)
  Receive Date: 20100518
  Receipt Date: 20091002
  Transmission Date: 20101027
  Serious: Yes (Hospitalization)
  Sender: FDA-Public Use
  Company Number: 230493M09USA

PATIENT
  Age: 30 Year
  Sex: Female
  Weight: 57 kg

DRUGS (1)
  1. REBIF [Suspect]
     Indication: MULTIPLE SCLEROSIS
     Dosage: 44 MCG, 3 IN 1 WK, SUBCUTANEOUS
     Route: 058
     Dates: start: 20090722, end: 20090831

REACTIONS (2)
  - CONDITION AGGRAVATED [None]
  - HEADACHE [None]
